FAERS Safety Report 7480502-4 (Version None)
Quarter: 2011Q2

REPORT INFORMATION
  Report Type: 
  Country: None (occurrence: None)
  Receive Date: 20110505
  Receipt Date: 20110426
  Transmission Date: 20111010
  Serious: Yes (Hospitalization)
  Sender: FDA-Public Use
  Company Number: WAES 1104FRA00141

PATIENT
  Age: 49 Year
  Sex: Male

DRUGS (8)
  1. ATORVASTATIN CALCIUM [Suspect]
     Indication: DYSLIPIDAEMIA
     Dates: start: 20070313, end: 20110306
  2. RITONAVIR [Concomitant]
  3. MARAVIROC [Suspect]
     Indication: HIV INFECTION
     Dosage: 150 MG/BID PO
     Route: 048
     Dates: start: 20110208, end: 20110304
  4. ISENTRESS [Suspect]
     Indication: HIV INFECTION
     Dosage: 400 MG/BID PO
     Route: 048
     Dates: start: 20110208, end: 20110304
  5. STAZANAVIR [Concomitant]
  6. TENOFOVIR DISOPROXIL FUMARATE [Concomitant]
  7. LAMIVUDINE [Concomitant]
  8. DARUNAVIR ETHANOLATE [Concomitant]

REACTIONS (18)
  - HYPERTONIA [None]
  - HYPOVENTILATION [None]
  - POLYURIA [None]
  - INCREASED UPPER AIRWAY SECRETION [None]
  - RHABDOMYOLYSIS [None]
  - DYSPHAGIA [None]
  - HYPONATRAEMIA [None]
  - DRUG INTERACTION [None]
  - LUNG INFILTRATION [None]
  - PETECHIAE [None]
  - POLYDIPSIA [None]
  - THIRST [None]
  - ASPIRATION [None]
  - CHEST DISCOMFORT [None]
  - UNRESPONSIVE TO STIMULI [None]
  - AMNESIA [None]
  - HYPERREFLEXIA [None]
  - GRAND MAL CONVULSION [None]
